FAERS Safety Report 17583657 (Version 1)
Quarter: 2020Q1

REPORT INFORMATION
  Report Type: Spontaneous
  Country: DE (occurrence: DE)
  Receive Date: 20200326
  Receipt Date: 20200326
  Transmission Date: 20200409
  Serious: Yes (Other)
  Sender: FDA-Public Use
  Company Number: DE-TEVA-2020-DE-1209014

PATIENT
  Age: 81 Year
  Sex: Male

DRUGS (15)
  1. LIPOSOMAL DOXORUBICIN [Suspect]
     Active Substance: DOXORUBICIN HYDROCHLORIDE
     Indication: DIFFUSE LARGE B-CELL LYMPHOMA
     Dosage: MODIFIED R-CHOP REGIMEN WAS ADMINISTERED IN MONTHLY INTERVALS.
     Route: 065
  2. CYCLOPHOSPHAMIDE. [Suspect]
     Active Substance: CYCLOPHOSPHAMIDE
     Dosage: MODIFIED R-CHOP REGIMEN WAS ADMINISTERED IN 75 % DOSE REDUCTION; 4 COURSES
     Route: 065
  3. CYCLOPHOSPHAMIDE. [Suspect]
     Active Substance: CYCLOPHOSPHAMIDE
     Dosage: MODIFIED R-CHOP REGIMEN IN 100 % DOSING.
     Route: 065
  4. VINCRISTINE [Suspect]
     Active Substance: VINCRISTINE
     Indication: DIFFUSE LARGE B-CELL LYMPHOMA
     Dosage: MODIFIED R-CHOP REGIMEN WAS ADMINISTERED IN MONTHLY INTERVALS.
     Route: 065
  5. CYCLOPHOSPHAMIDE. [Suspect]
     Active Substance: CYCLOPHOSPHAMIDE
     Indication: DIFFUSE LARGE B-CELL LYMPHOMA
     Dosage: MODIFIED R-CHOP REGIMEN WAS ADMINISTERED IN MONTHLY INTERVALS.
     Route: 065
  6. VINCRISTINE [Suspect]
     Active Substance: VINCRISTINE
     Dosage: MODIFIED R-CHOP REGIMEN WAS ADMINISTERED IN 75 % DOSE REDUCTION; 4 COURSES
     Route: 065
  7. LIPOSOMAL DOXORUBICIN [Suspect]
     Active Substance: DOXORUBICIN HYDROCHLORIDE
     Dosage: MODIFIED R-CHOP REGIMEN WAS ADMINISTERED IN 75 % DOSE REDUCTION; 4 COURSES
     Route: 065
  8. PREDNISOLONE. [Suspect]
     Active Substance: PREDNISOLONE
     Indication: DIFFUSE LARGE B-CELL LYMPHOMA
     Dosage: MODIFIED R-CHOP REGIMEN WAS ADMINISTERED IN MONTHLY INTERVALS.
     Route: 065
  9. PREDNISOLONE. [Suspect]
     Active Substance: PREDNISOLONE
     Dosage: MODIFIED R-CHOP REGIMEN WAS ADMINISTERED IN 75 % DOSE REDUCTION; 4 COURSES
     Route: 065
  10. PREDNISOLONE. [Suspect]
     Active Substance: PREDNISOLONE
     Dosage: MODIFIED R-CHOP REGIMEN IN 100 % DOSING.
     Route: 065
  11. VINCRISTINE [Suspect]
     Active Substance: VINCRISTINE
     Dosage: MODIFIED R-CHOP REGIMEN IN 100 % DOSING.
     Route: 065
  12. RITUXIMAB. [Suspect]
     Active Substance: RITUXIMAB
     Indication: DIFFUSE LARGE B-CELL LYMPHOMA
     Dosage: MODIFIED R-CHOP REGIMEN WAS ADMINISTERED IN MONTHLY INTERVALS.
     Route: 065
  13. LIPOSOMAL DOXORUBICIN [Suspect]
     Active Substance: DOXORUBICIN HYDROCHLORIDE
     Dosage: MODIFIED R-CHOP REGIMEN IN 100 % DOSING.
     Route: 065
  14. RITUXIMAB. [Suspect]
     Active Substance: RITUXIMAB
     Dosage: MODIFIED R-CHOP REGIMEN IN 100 % DOSING.
     Route: 065
  15. RITUXIMAB. [Suspect]
     Active Substance: RITUXIMAB
     Dosage: MODIFIED R-CHOP REGIMEN WAS ADMINISTERED IN 75 % DOSE REDUCTION; 4 COURSES
     Route: 065

REACTIONS (6)
  - Thrombosis [Unknown]
  - Agitation [Unknown]
  - Extravasation [Unknown]
  - Headache [Unknown]
  - Leukopenia [Unknown]
  - Dizziness [Unknown]
